FAERS Safety Report 5073234-3 (Version None)
Quarter: 2006Q3

REPORT INFORMATION
  Report Type: 
  Country: None (occurrence: None)
  Receive Date: 20060802
  Receipt Date: 20060720
  Transmission Date: 20061208
  Serious: Yes (Other)
  Sender: FDA-Public Use
  Company Number: US-2006-020022

PATIENT
  Age: 67 Year
  Sex: Female

DRUGS (15)
  1. BETASERON [Suspect]
     Indication: RELAPSING-REMITTING MULTIPLE SCLEROSIS
     Dosage: 8 MIU, EVERY 2D, SUBCUTANEOUS
     Route: 058
     Dates: start: 19940401
  2. LOPRESSOR [Concomitant]
  3. BACLOFEN [Concomitant]
  4. FOSAMAX [Concomitant]
  5. MACROBID [Concomitant]
  6. TYLENOL PM (DIPHENHYDRAMINE) [Concomitant]
  7. DIOVAN [Concomitant]
  8. LIPITOR [Concomitant]
  9. HYDROCHLOROTHIAZIDE [Concomitant]
  10. ARIMIDEX [Concomitant]
  11. TRICOR [Concomitant]
  12. MVI (VITAMINS NOS) [Concomitant]
  13. ASPIRIN [Concomitant]
  14. CALTRATE + D [Concomitant]
  15. MOTRIN [Concomitant]

REACTIONS (2)
  - BREAST CANCER FEMALE [None]
  - NON-HODGKIN'S LYMPHOMA [None]
